FAERS Safety Report 18672679 (Version 1)
Quarter: 2020Q4

REPORT INFORMATION
  Report Type: Spontaneous
  Country: IN (occurrence: IN)
  Receive Date: 20201228
  Receipt Date: 20201228
  Transmission Date: 20210114
  Serious: Yes (Other)
  Sender: FDA-Public Use
  Company Number: IN-GLAXOSMITHKLINE-IN2020GSK256273

PATIENT
  Age: 24 Year
  Sex: Male

DRUGS (4)
  1. AZITHROMYCIN ANHYDROUS. [Suspect]
     Active Substance: AZITHROMYCIN ANHYDROUS
     Indication: NASOPHARYNGITIS
  2. DICLOFENAC SODIUM. [Suspect]
     Active Substance: DICLOFENAC SODIUM
     Indication: PHARYNGITIS
     Dosage: UNK
  3. AZITHROMYCIN ANHYDROUS. [Suspect]
     Active Substance: AZITHROMYCIN ANHYDROUS
     Indication: PHARYNGITIS
     Dosage: UNK
  4. DICLOFENAC SODIUM. [Suspect]
     Active Substance: DICLOFENAC SODIUM
     Indication: NASOPHARYNGITIS

REACTIONS (9)
  - Oral pain [Recovered/Resolved]
  - Scab [Recovered/Resolved]
  - Oral mucosa erosion [Recovered/Resolved]
  - Drug hypersensitivity [Unknown]
  - Erythema multiforme [Recovered/Resolved]
  - Eating disorder [Recovered/Resolved]
  - Target skin lesion [Recovered/Resolved]
  - Skin ulcer haemorrhage [Recovered/Resolved]
  - Ulcer [Recovered/Resolved]
